FAERS Safety Report 9245259 (Version 2)
Quarter: 2013Q2

REPORT INFORMATION
  Report Type: Spontaneous
  Country: US (occurrence: US)
  Receive Date: 20130422
  Receipt Date: 20130527
  Transmission Date: 20140414
  Serious: No
  Sender: FDA-Public Use
  Company Number: US-PFIZER INC-2013120737

PATIENT
  Age: 68 Year
  Sex: Male

DRUGS (3)
  1. INLYTA [Suspect]
     Indication: BLADDER CANCER
     Dosage: 5 MG, 2X/DAY
     Route: 048
     Dates: start: 20130315, end: 20130514
  2. AMLODIPINE [Concomitant]
     Dosage: 5 MG, 1X/DAY
  3. LOSARTAN [Concomitant]
     Dosage: 25 MG, 1X/DAY

REACTIONS (5)
  - Glossodynia [Unknown]
  - Dysphagia [Unknown]
  - Oral pain [Unknown]
  - Diarrhoea [Recovering/Resolving]
  - Stomatitis [Recovering/Resolving]
